FAERS Safety Report 4862577-1 (Version None)
Quarter: 2005Q4

REPORT INFORMATION
  Report Type: 
  Country: None (occurrence: None)
  Receive Date: 20051221
  Receipt Date: 20051201
  Transmission Date: 20060501
  Serious: Yes (Other)
  Sender: FDA-Public Use
  Company Number: 2005023666

PATIENT
  Age: 3 Year
  Sex: Male
  Weight: 18 kg

DRUGS (1)
  1. SULTANOL [Suspect]
     Dosage: 3ML SINGLE DOSE
     Route: 048

REACTIONS (4)
  - ACCIDENTAL DRUG INTAKE BY CHILD [None]
  - ACCIDENTAL OVERDOSE [None]
  - HYPERTENSION [None]
  - TACHYCARDIA [None]
